FAERS Safety Report 13546091 (Version 1)
Quarter: 2017Q2

REPORT INFORMATION
  Report Type: Spontaneous
  Country: US (occurrence: US)
  Receive Date: 20170514
  Receipt Date: 20170514
  Transmission Date: 20170830
  Serious: Yes (Other)
  Sender: FDA-Public Use
  Company Number: None

PATIENT
  Age: 40 Year
  Sex: Male
  Weight: 96.75 kg

DRUGS (2)
  1. ZUBSOLV [Suspect]
     Active Substance: BUPRENORPHINE HYDROCHLORIDE\NALOXONE HYDROCHLORIDE
     Indication: DRUG USE DISORDER
     Dosage: ?          QUANTITY:1 TABLET(S);?
     Route: 060
     Dates: start: 20170502, end: 20170514
  2. BUPRINORPHINE [Concomitant]

REACTIONS (4)
  - Drug withdrawal syndrome [None]
  - Drug use disorder [None]
  - Device issue [None]
  - Product quality issue [None]

NARRATIVE: CASE EVENT DATE: 20170502
